FAERS Safety Report 5647304-2 (Version None)
Quarter: 2008Q1

REPORT INFORMATION
  Report Type: 
  Country: None (occurrence: None)
  Receive Date: 20080303
  Receipt Date: 20080211
  Transmission Date: 20080703
  Serious: Yes (Other)
  Sender: FDA-Public Use
  Company Number: US-BAYER-200813684GPV

PATIENT
  Age: 59 Year
  Sex: Male

DRUGS (22)
  1. APROTININ [Suspect]
     Indication: VENTRICULAR ASSIST DEVICE INSERTION
     Route: 042
  2. RFVIIA (RECOMBINANT FACTOR VIIA) [Suspect]
     Indication: COAGULOPATHY
     Route: 042
  3. HEPARIN [Suspect]
     Indication: DRUG USE FOR UNKNOWN INDICATION
     Route: 065
  4. PLATELETS [Concomitant]
     Indication: COAGULOPATHY
     Route: 065
  5. PLATELETS [Concomitant]
  6. FRESH FROZEN PLASMA [Concomitant]
     Indication: COAGULOPATHY
     Route: 065
  7. FRESH FROZEN PLASMA [Concomitant]
     Route: 065
  8. CRYOPRECIPITATED AHF [Concomitant]
     Indication: COAGULOPATHY
     Route: 065
  9. CRYOPRECIPITATED AHF [Concomitant]
     Route: 065
  10. RED BLOOD CELLS [Concomitant]
     Indication: COAGULOPATHY
     Route: 065
  11. RED BLOOD CELLS [Concomitant]
     Route: 065
  12. RED BLOOD CELLS [Concomitant]
     Route: 065
  13. LEPIRUDIN [Concomitant]
     Indication: ANTICOAGULANT THERAPY
     Route: 065
  14. BIVALIRUDIN [Concomitant]
     Indication: ANTICOAGULANT THERAPY
     Route: 042
  15. BIVALIRUDIN [Concomitant]
     Dosage: UNIT DOSE: 0.63 MG/KG
     Route: 042
  16. BIVALIRUDIN [Concomitant]
     Route: 042
  17. EPINEPHRINE [Concomitant]
     Indication: CARDIAC FAILURE
     Route: 065
  18. EPINEPHRINE [Concomitant]
     Route: 065
  19. DOPAMINE HCL [Concomitant]
     Indication: CARDIAC FAILURE
     Route: 065
  20. DOPAMINE HCL [Concomitant]
  21. MILRINONE LACTATE [Concomitant]
     Indication: CARDIAC FAILURE
     Route: 065
  22. ASPIRIN [Concomitant]
     Indication: DRUG USE FOR UNKNOWN INDICATION
     Route: 065

REACTIONS (3)
  - ATRIAL THROMBOSIS [None]
  - VENA CAVA THROMBOSIS [None]
  - VENOUS THROMBOSIS [None]
